FAERS Safety Report 8909766 (Version 2)
Quarter: 2012Q4

REPORT INFORMATION
  Report Type: 
  Country: JP (occurrence: JP)
  Receive Date: 20121115
  Receipt Date: 20121218
  Transmission Date: 20130627
  Serious: Yes (Other)
  Sender: FDA-Public Use
  Company Number: JP-PFIZER INC-2012285693

PATIENT
  Age: 74 Year
  Sex: Male

DRUGS (7)
  1. RELPAX [Suspect]
     Indication: MIGRAINE
     Dosage: 40 mg, daily
     Route: 048
     Dates: start: 200501
  2. ZOMIG [Suspect]
     Indication: MIGRAINE
     Dosage: UNK
     Route: 048
     Dates: start: 200603
  3. IMIGRAN [Suspect]
     Indication: MIGRAINE
     Dosage: UNK
     Route: 045
     Dates: start: 200605
  4. LUVOX [Concomitant]
     Dosage: UNK
     Route: 048
  5. RIVOTRIL [Concomitant]
     Dosage: UNK
     Route: 048
  6. MIGSIS [Concomitant]
     Dosage: UNK
     Route: 048
  7. CYMBALTA [Concomitant]
     Route: 048

REACTIONS (5)
  - Drug abuse [Unknown]
  - Malaise [Unknown]
  - Dizziness [Unknown]
  - Headache [Unknown]
  - Drug ineffective [None]
